FAERS Safety Report 11781548 (Version 1)
Quarter: 2015Q4

REPORT INFORMATION
  Report Type: Spontaneous
  Country: CO (occurrence: CO)
  Receive Date: 20151126
  Receipt Date: 20151126
  Transmission Date: 20160305
  Serious: Yes (Hospitalization, Other)
  Sender: FDA-Public Use
  Company Number: CO-JNJFOC-20151121752

PATIENT
  Age: 67 Year
  Sex: Female

DRUGS (1)
  1. RISPERDAL CONSTA [Suspect]
     Active Substance: RISPERIDONE
     Indication: SCHIZOPHRENIA
     Route: 030
     Dates: start: 20140615

REACTIONS (4)
  - Aggression [Not Recovered/Not Resolved]
  - Insomnia [Not Recovered/Not Resolved]
  - Tremor [Not Recovered/Not Resolved]
  - Decreased appetite [Not Recovered/Not Resolved]

NARRATIVE: CASE EVENT DATE: 20151103
